FAERS Safety Report 6540572-4 (Version None)
Quarter: 2010Q1

REPORT INFORMATION
  Report Type: 
  Country: None (occurrence: None)
  Receive Date: 20100113
  Receipt Date: 20100104
  Transmission Date: 20100710
  Serious: Yes (Other)
  Sender: FDA-Public Use
  Company Number: 2010SP000810

PATIENT
  Age: 55 Year
  Sex: Female
  Weight: 69.1 kg

DRUGS (2)
  1. INTRON A [Suspect]
     Indication: HEPATITIS C
  2. RIBAVIRIN [Suspect]
     Indication: HEPATITIS C

REACTIONS (5)
  - ADRENAL INSUFFICIENCY [None]
  - CONDITION AGGRAVATED [None]
  - HEPATITIS C [None]
  - METABOLIC ACIDOSIS [None]
  - VITILIGO [None]
